FAERS Safety Report 4515142-X (Version None)
Quarter: 2004Q4

REPORT INFORMATION
  Report Type: 
  Country: None (occurrence: None)
  Receive Date: 20041130
  Receipt Date: 20041130
  Transmission Date: 20050328
  Serious: Yes (Hospitalization)
  Sender: FDA-Public Use
  Company Number: None

PATIENT
  Sex: Male

DRUGS (17)
  1. INSULIN [Suspect]
     Indication: DIABETES MELLITUS
     Dosage: 28 UNITS  BID  SUBCUTANEO
     Route: 058
  2. ASPIRIN [Concomitant]
  3. CARVEDILOL [Concomitant]
  4. DIGOXIN [Concomitant]
  5. FERROUS SULFATE TAB [Concomitant]
  6. FUROSEMIDE [Concomitant]
  7. LISINOPRIL [Concomitant]
  8. CYANOCOBALAMIN [Concomitant]
  9. FOLIC ACID [Concomitant]
  10. NTG SL [Concomitant]
  11. SIMVASTATIN [Concomitant]
  12. THIAMINE [Concomitant]
  13. CAPSAICIN CREAM [Concomitant]
  14. MULTI-VITAMIN [Concomitant]
  15. AMITRIPTYLINE HCL [Concomitant]
  16. METOCLOPRAMIDE [Concomitant]
  17. APAP TAB [Concomitant]

REACTIONS (1)
  - HYPOGLYCAEMIA [None]
